FAERS Safety Report 9585775 (Version 1)
Quarter: 2013Q4

REPORT INFORMATION
  Report Type: Spontaneous
  Country: US (occurrence: None)
  Receive Date: 20131002
  Receipt Date: 20131002
  Transmission Date: 20140711
  Serious: Yes (Life-Threatening, Hospitalization)
  Sender: FDA-Public Use
  Company Number: None

PATIENT
  Age: 31 Year
  Sex: Female
  Weight: 70.31 kg

DRUGS (2)
  1. CYMBALTA [Suspect]
     Indication: MAJOR DEPRESSION
     Dosage: 1 PILL  ONCE DAIY  TAKEN BY MOUTH
     Route: 048
     Dates: end: 20120929
  2. CYMBALTA [Suspect]
     Indication: FIBROMYALGIA
     Dosage: 1 PILL  ONCE DAIY  TAKEN BY MOUTH
     Route: 048
     Dates: end: 20120929

REACTIONS (8)
  - Weight increased [None]
  - Libido decreased [None]
  - Nausea [None]
  - Pain [None]
  - Hepatic enzyme increased [None]
  - Drug interaction [None]
  - Maternal exposure during pregnancy [None]
  - Analgesic drug level increased [None]
